FAERS Safety Report 23362344 (Version 1)
Quarter: 2024Q1

REPORT INFORMATION
  Report Type: Spontaneous
  Country: US (occurrence: US)
  Receive Date: 20240103
  Receipt Date: 20240103
  Transmission Date: 20240410
  Serious: Yes (Hospitalization)
  Sender: FDA-Public Use
  Company Number: US-TEVA-VS-3138814

PATIENT
  Age: 51 Year

DRUGS (2)
  1. COPAXONE [Suspect]
     Active Substance: GLATIRAMER ACETATE
     Indication: Multiple sclerosis relapse
     Dosage: STOPPED 3 YEARS AGO
     Route: 065
  2. COPAXONE [Suspect]
     Active Substance: GLATIRAMER ACETATE
     Dosage: TIME INTERVAL: 0.33333333 WEEKS
     Route: 065
     Dates: start: 20220524

REACTIONS (8)
  - Vision blurred [Unknown]
  - Intracranial pressure increased [Unknown]
  - Injection site discharge [Unknown]
  - Intraocular pressure test abnormal [Unknown]
  - Depression [Unknown]
  - Brain fog [Unknown]
  - Feeling abnormal [Unknown]
  - Impaired driving ability [Unknown]
